FAERS Safety Report 4742734-5 (Version None)
Quarter: 2005Q3

REPORT INFORMATION
  Report Type: 
  Country: None (occurrence: None)
  Receive Date: 20050810
  Receipt Date: 20050810
  Transmission Date: 20060218
  Serious: Yes (Other)
  Sender: FDA-Public Use
  Company Number: None

PATIENT
  Age: 73 Year
  Sex: Male
  Weight: 95.2554 kg

DRUGS (1)
  1. ZOLADEX [Suspect]
     Indication: BENIGN PROSTATIC HYPERPLASIA
     Dosage: 10.8 MG
     Dates: start: 20041203

REACTIONS (7)
  - BURNING SENSATION [None]
  - DIZZINESS [None]
  - FALL [None]
  - HEAD INJURY [None]
  - SKELETAL INJURY [None]
  - VISUAL DISTURBANCE [None]
  - WEIGHT DECREASED [None]
